FAERS Safety Report 17674702 (Version 4)
Quarter: 2020Q4

REPORT INFORMATION
  Report Type: Report from Study
  Country: US (occurrence: US)
  Receive Date: 20200416
  Receipt Date: 20201124
  Transmission Date: 20210113
  Serious: Yes (Life-Threatening, Hospitalization)
  Sender: FDA-Public Use
  Company Number: NVSC2020US100803

PATIENT
  Age: 57 Year
  Sex: Male

DRUGS (5)
  1. ENTRESTO [Suspect]
     Active Substance: SACUBITRIL\VALSARTAN
     Dosage: 200 MG, BID (97/103 MG)
     Route: 048
  2. ENTRESTO [Suspect]
     Active Substance: SACUBITRIL\VALSARTAN
     Dosage: 50 MG, BID (24/26)MG
     Route: 048
  3. ENTRESTO [Suspect]
     Active Substance: SACUBITRIL\VALSARTAN
     Indication: PRODUCT USED FOR UNKNOWN INDICATION
     Dosage: 200 MG, BID (97/103)MG
     Route: 048
     Dates: start: 2014
  4. ENTRESTO [Suspect]
     Active Substance: SACUBITRIL\VALSARTAN
     Dosage: 100 MG, (49/51MG) UNKNOWN
     Route: 048
  5. SOTALOL. [Suspect]
     Active Substance: SOTALOL
     Indication: PRODUCT USED FOR UNKNOWN INDICATION
     Dosage: UNK
     Route: 065

REACTIONS (9)
  - Cardiac arrest [Unknown]
  - Sepsis [Recovering/Resolving]
  - Device related infection [Unknown]
  - Respiratory failure [Recovering/Resolving]
  - Near death experience [Unknown]
  - Illness [Unknown]
  - Cardiac failure [Unknown]
  - Renal failure [Unknown]
  - Dizziness [Unknown]

NARRATIVE: CASE EVENT DATE: 201912
